FAERS Safety Report 5086864-X (Version None)
Quarter: 2006Q3

REPORT INFORMATION
  Report Type: 
  Country: None (occurrence: None)
  Receive Date: 20060818
  Receipt Date: 20060802
  Transmission Date: 20061208
  Serious: Yes (Hospitalization, Other)
  Sender: FDA-Public Use
  Company Number: US-2006-021465

PATIENT
  Age: 46 Year
  Sex: Female
  Weight: 42 kg

DRUGS (1)
  1. BETASERON [Suspect]
     Indication: MULTIPLE SCLEROSIS
     Dosage: 8 MIU, EVERY 2D, SUBCUTANEOUS
     Route: 058
     Dates: start: 20030205

REACTIONS (5)
  - CERVICAL VERTEBRAL FRACTURE [None]
  - CONVULSION [None]
  - FALL [None]
  - ORAL INTAKE REDUCED [None]
  - WEIGHT DECREASED [None]
